FAERS Safety Report 9760184 (Version 1)
Quarter: 2013Q4

REPORT INFORMATION
  Report Type: Spontaneous
  Country: TN (occurrence: None)
  Receive Date: 20131212
  Receipt Date: 20131212
  Transmission Date: 20140711
  Serious: Yes (Other)
  Sender: FDA-Public Use
  Company Number: 2013P1021822

PATIENT
  Age: 39 Year
  Sex: Male

DRUGS (2)
  1. RIFAMPIN [Suspect]
     Indication: TUBERCULOSIS
     Dosage: ;QD;
  2. PYRAZINAMIDE [Suspect]
     Indication: TUBERCULOSIS

REACTIONS (3)
  - Haemodialysis [None]
  - Graft loss [None]
  - Chronic allograft nephropathy [None]
